FAERS Safety Report 24036692 (Version 1)
Quarter: 2024Q3

REPORT INFORMATION
  Report Type: Spontaneous
  Country: DE (occurrence: DE)
  Receive Date: 20240701
  Receipt Date: 20240701
  Transmission Date: 20241017
  Serious: Yes (Other)
  Sender: MYLAN
  Company Number: DE-ALKEM LABORATORIES LIMITED-DE-ALKEM-2022-02667

PATIENT
  Age: 34 Year
  Sex: Male

DRUGS (3)
  1. PREGABALIN [Suspect]
     Active Substance: PREGABALIN
     Indication: Opioid sparing treatment
     Dosage: 200 MILLIGRAM, QD,(AVERAGE 200 MG DAILY DOSE  )
     Route: 065
  2. GABAPENTIN [Suspect]
     Active Substance: GABAPENTIN
     Indication: Opioid sparing treatment
     Dosage: 200 MILLIGRAM, QD (AVERAGE 200 MILLIGRAM DAILY DOSE)
     Route: 065
  3. GABAPENTIN [Concomitant]
     Active Substance: GABAPENTIN
     Indication: Opioid sparing treatment
     Dosage: 200 MILLIGRAM, QD, (AVERAGE 200 MG DAILY DOSE)
     Route: 065

REACTIONS (2)
  - Drug abuse [Unknown]
  - Product use in unapproved indication [Unknown]
